FAERS Safety Report 6693642-4 (Version None)
Quarter: 2010Q2

REPORT INFORMATION
  Report Type: 
  Country: None (occurrence: None)
  Receive Date: 20100423
  Receipt Date: 20100413
  Transmission Date: 20101027
  Serious: Yes (Hospitalization)
  Sender: FDA-Public Use
  Company Number: US-CELGENEUS-163-21880-10041105

PATIENT
  Sex: Male

DRUGS (2)
  1. REVLIMID [Suspect]
     Indication: MULTIPLE MYELOMA
     Route: 048
     Dates: start: 20100201
  2. REVLIMID [Suspect]
     Route: 048
     Dates: start: 20091201, end: 20100101

REACTIONS (2)
  - CARDIAC DISORDER [None]
  - RENAL FAILURE [None]
